FAERS Safety Report 17588700 (Version 9)
Quarter: 2020Q4

REPORT INFORMATION
  Report Type: Report from Study
  Country: IL (occurrence: IL)
  Receive Date: 20200327
  Receipt Date: 20201215
  Transmission Date: 20210113
  Serious: Yes (Hospitalization)
  Sender: FDA-Public Use
  Company Number: IL-ROCHE-2557955

PATIENT
  Age: 46 Year
  Sex: Female
  Weight: 49.6 kg

DRUGS (48)
  1. ATEZOLIZUMAB. [Suspect]
     Active Substance: ATEZOLIZUMAB
     Indication: MALIGNANT NEOPLASM OF UNKNOWN PRIMARY SITE
     Dosage: ON 10/FEB/2020 RECEIVED LAST DOSE OF ATEZOLIZUMAB OF 1200 MG PRIOR TO SERIOUS ADVERSE EVENT ONSET
     Route: 041
     Dates: start: 20200210
  2. GEMCITABINE. [Suspect]
     Active Substance: GEMCITABINE
     Dosage: ON 10/FEB/2020, GEMICITABINE WAS ADMINISTERED AT 15:30 PRIOR TO SAE ONSET.
     Route: 042
     Dates: start: 20191210
  3. IMODIUM [Concomitant]
     Active Substance: LOPERAMIDE HYDROCHLORIDE
     Indication: DIARRHOEA
     Route: 048
     Dates: start: 20200215
  4. KONAKION [Concomitant]
     Active Substance: PHYTONADIONE
     Route: 048
     Dates: start: 20200227, end: 20200227
  5. CLEXAN [Concomitant]
     Active Substance: ENOXAPARIN SODIUM
     Route: 058
     Dates: start: 20200220, end: 20200224
  6. DEXAMETHASONE. [Concomitant]
     Active Substance: DEXAMETHASONE
     Route: 048
     Dates: start: 20191225, end: 20191225
  7. LOSEC [Concomitant]
     Active Substance: OMEPRAZOLE
     Route: 048
     Dates: start: 20200407, end: 20200412
  8. LOSEC [Concomitant]
     Active Substance: OMEPRAZOLE
     Route: 048
     Dates: start: 20200609, end: 20200614
  9. MAGNOX [Concomitant]
     Indication: HYPOMAGNESAEMIA
     Route: 042
     Dates: start: 20200219, end: 20200222
  10. GEMCITABINE. [Suspect]
     Active Substance: GEMCITABINE
     Indication: MALIGNANT NEOPLASM OF UNKNOWN PRIMARY SITE
     Dosage: ON 20/JAN/2020, GEMICITABINE WAS ADMINISTERED AT 1530 MG PRIOR TO SAE ONSET.
     Route: 042
     Dates: start: 20200120
  11. CLEXANE [Concomitant]
     Active Substance: ENOXAPARIN SODIUM
     Route: 058
     Dates: start: 20200220, end: 20200224
  12. CLEXAN [Concomitant]
     Active Substance: ENOXAPARIN SODIUM
     Route: 058
     Dates: start: 20190926, end: 20200220
  13. DEXAMETHASONE. [Concomitant]
     Active Substance: DEXAMETHASONE
     Route: 048
     Dates: start: 20200115, end: 20200115
  14. DEXAMETHASONE. [Concomitant]
     Active Substance: DEXAMETHASONE
     Route: 048
     Dates: start: 20200116, end: 20200116
  15. DEXAMETHASONE. [Concomitant]
     Active Substance: DEXAMETHASONE
     Route: 048
     Dates: start: 20191227, end: 20191227
  16. DEXAMETHASONE. [Concomitant]
     Active Substance: DEXAMETHASONE
     Route: 048
     Dates: start: 20200118, end: 20200118
  17. LOSEC [Concomitant]
     Active Substance: OMEPRAZOLE
     Route: 048
     Dates: start: 20200317, end: 20200322
  18. MAGNESIUM [Concomitant]
     Active Substance: MAGNESIUM
     Indication: HYPOMAGNESAEMIA
     Route: 042
     Dates: start: 20200218, end: 20200218
  19. OPTALGIN [Concomitant]
     Active Substance: METAMIZOLE
     Indication: PYREXIA
     Route: 048
     Dates: start: 20200304, end: 20200304
  20. CISPLATIN. [Suspect]
     Active Substance: CISPLATIN
     Indication: MALIGNANT NEOPLASM OF UNKNOWN PRIMARY SITE
     Dosage: ON 13/JAN/2020, THE CISPLATIN WAS ADMINISTERED AT 01:15 PRIOR TO ONSET OF SAE
     Route: 042
     Dates: start: 20200113
  21. DEXAMETHASONE. [Concomitant]
     Active Substance: DEXAMETHASONE
     Route: 048
     Dates: start: 20191224, end: 20191224
  22. DEXAMETHASONE. [Concomitant]
     Active Substance: DEXAMETHASONE
     Route: 048
     Dates: start: 20191226, end: 20191226
  23. DEXAMETHASONE. [Concomitant]
     Active Substance: DEXAMETHASONE
     Route: 048
     Dates: start: 20200114, end: 20200114
  24. DEXAMETHASONE. [Concomitant]
     Active Substance: DEXAMETHASONE
     Route: 048
     Dates: start: 20191228, end: 20191228
  25. DEXAMETHASONE. [Concomitant]
     Active Substance: DEXAMETHASONE
     Route: 047
     Dates: start: 20200117, end: 20200117
  26. LOSEC [Concomitant]
     Active Substance: OMEPRAZOLE
     Route: 048
     Dates: start: 20200519, end: 20200524
  27. PARACETAMOL [Concomitant]
     Active Substance: ACETAMINOPHEN
     Indication: PYREXIA
     Route: 048
     Dates: start: 20200304, end: 20200304
  28. LOSEC [Concomitant]
     Active Substance: OMEPRAZOLE
     Route: 048
     Dates: start: 20200428, end: 20200503
  29. ZALDIAR [Concomitant]
     Active Substance: ACETAMINOPHEN\TRAMADOL HYDROCHLORIDE
     Indication: ABDOMINAL PAIN UPPER
     Route: 048
     Dates: start: 20200210
  30. CISPLATIN. [Suspect]
     Active Substance: CISPLATIN
     Dosage: ON 10/FEB/2020, THE CISPLATIN WAS ADMINISTERED AT 01:15 PRIOR TO ONSET OF SAE
     Route: 042
     Dates: start: 20200210
  31. GLUCAGEN HYPOKIT [Concomitant]
     Active Substance: GLUCAGON HYDROCHLORIDE
     Route: 058
     Dates: start: 20191128
  32. POTASSIUM CHLORIDE. [Concomitant]
     Active Substance: POTASSIUM CHLORIDE
     Route: 042
     Dates: start: 20191202, end: 20200210
  33. LOSEC [Concomitant]
     Active Substance: OMEPRAZOLE
     Route: 048
     Dates: start: 20191224, end: 20191229
  34. LOSEC [Concomitant]
     Active Substance: OMEPRAZOLE
     Route: 048
     Dates: start: 20200630, end: 20200705
  35. LOSEC [Concomitant]
     Active Substance: OMEPRAZOLE
     Route: 048
     Dates: start: 20200721, end: 20200726
  36. ZALDIAR [Concomitant]
     Active Substance: ACETAMINOPHEN\TRAMADOL HYDROCHLORIDE
     Indication: BACK PAIN
  37. ELIQUIS [Concomitant]
     Active Substance: APIXABAN
     Route: 048
     Dates: start: 20200317
  38. AKYNZEO [Concomitant]
     Active Substance: NETUPITANT\PALONOSETRON HYDROCHLORIDE
     Route: 048
     Dates: start: 20191202
  39. LOSEC [Concomitant]
     Active Substance: OMEPRAZOLE
     Route: 048
     Dates: start: 20200204, end: 20200209
  40. DEXAMETHASONE. [Concomitant]
     Active Substance: DEXAMETHASONE
     Route: 048
     Dates: start: 20200119, end: 20200119
  41. LOSEC [Concomitant]
     Active Substance: OMEPRAZOLE
     Route: 048
     Dates: start: 20200225, end: 20200301
  42. KYTRIL [Concomitant]
     Active Substance: GRANISETRON HYDROCHLORIDE
     Route: 048
     Dates: start: 20191223
  43. MAGNOX [Concomitant]
     Route: 048
     Dates: start: 20200223, end: 20200224
  44. PRAMIN (ISRAEL) [Concomitant]
     Active Substance: IMIPRAMINE
     Route: 048
     Dates: start: 20191113
  45. DEXAMETHASONE. [Concomitant]
     Active Substance: DEXAMETHASONE
     Route: 048
     Dates: start: 20191229, end: 20191229
  46. TANTUM VERDE [Concomitant]
     Active Substance: BENZYDAMINE HYDROCHLORIDE
     Route: 061
     Dates: start: 20200124, end: 20200125
  47. MAGNOX [Concomitant]
     Route: 048
     Dates: start: 20200225
  48. ACAMOL (ISRAEL) [Concomitant]
     Indication: PYREXIA
     Route: 048
     Dates: start: 20200229, end: 20200229

REACTIONS (3)
  - Dysarthria [Recovered/Resolved]
  - Autoimmune haemolytic anaemia [Not Recovered/Not Resolved]
  - Small intestinal haemorrhage [Recovered/Resolved]

NARRATIVE: CASE EVENT DATE: 20200218
